FAERS Safety Report 19832270 (Version 1)
Quarter: 2021Q3

REPORT INFORMATION
  Report Type: Spontaneous
  Country: FR (occurrence: FR)
  Receive Date: 20210915
  Receipt Date: 20210915
  Transmission Date: 20211014
  Serious: Yes (Hospitalization)
  Sender: FDA-Public Use
  Company Number: FR-ASTRAZENECA-2021A715161

PATIENT
  Age: 69 Year
  Sex: Male
  Weight: 85 kg

DRUGS (8)
  1. COMIRNATY [Concomitant]
     Active Substance: TOZINAMERAN
     Indication: COVID-19 IMMUNISATION
     Route: 030
     Dates: start: 20210205, end: 20210225
  2. FUROSEMIDE. [Concomitant]
     Active Substance: FUROSEMIDE
     Indication: PRODUCT USED FOR UNKNOWN INDICATION
     Route: 048
  3. KARDEGIC [Concomitant]
     Active Substance: ASPIRIN DL-LYSINE
     Indication: THROMBOSIS PROPHYLAXIS
     Route: 048
  4. PANTOPRAZOLE [Concomitant]
     Active Substance: PANTOPRAZOLE
     Indication: GASTROOESOPHAGEAL REFLUX DISEASE
     Route: 048
  5. QUETIAPINE. [Suspect]
     Active Substance: QUETIAPINE
     Indication: SCHIZOPHRENIA
     Route: 048
     Dates: start: 2021, end: 20210817
  6. EUPHYTOSE [Concomitant]
     Active Substance: HERBALS
     Indication: INSOMNIA
     Route: 048
  7. TERCIAN [Suspect]
     Active Substance: CYAMEMAZINE
     Indication: SCHIZOPHRENIA
     Route: 048
     Dates: end: 20210817
  8. ATORVASTATINE [Concomitant]
     Active Substance: ATORVASTATIN
     Indication: DYSLIPIDAEMIA
     Route: 048

REACTIONS (1)
  - Neuroleptic malignant syndrome [Recovering/Resolving]

NARRATIVE: CASE EVENT DATE: 20210816
